FAERS Safety Report 4602403-9 (Version None)
Quarter: 2005Q1

REPORT INFORMATION
  Report Type: 
  Country: None (occurrence: None)
  Receive Date: 20050309
  Receipt Date: 20050217
  Transmission Date: 20050727
  Serious: Yes (Death, Other)
  Sender: FDA-Public Use
  Company Number: 200511616GDDC

PATIENT
  Age: 40 Year
  Sex: Female

DRUGS (4)
  1. DOCETAXEL [Suspect]
     Indication: BREAST CANCER
     Route: 042
  2. EPIRUBICIN [Suspect]
     Indication: BREAST CANCER
     Route: 042
  3. CYCLOPHOSPHAMIDE [Suspect]
     Indication: BREAST CANCER
     Dosage: DOSE UNIT: GRAM PER SQUARE METRE
     Route: 042
  4. RADIOTHERAPY [Concomitant]
     Indication: BREAST CANCER
     Dosage: DOSE: UNK

REACTIONS (1)
  - ACUTE LYMPHOCYTIC LEUKAEMIA [None]
